FAERS Safety Report 7272083-5 (Version None)
Quarter: 2011Q1

REPORT INFORMATION
  Report Type: 
  Country: None (occurrence: None)
  Receive Date: 20110203
  Receipt Date: 20110126
  Transmission Date: 20110831
  Serious: Yes (Hospitalization)
  Sender: FDA-Public Use
  Company Number: FR-JNJFOC-20110107219

PATIENT
  Age: 71 Year
  Sex: Female

DRUGS (3)
  1. AVLOCARDYL [Concomitant]
     Indication: MIGRAINE
     Route: 065
  2. TAVANIC [Suspect]
     Indication: PRODUCT USED FOR UNKNOWN INDICATION
     Route: 048
  3. MEDROL [Suspect]
     Indication: PRODUCT USED FOR UNKNOWN INDICATION
     Route: 065

REACTIONS (6)
  - COUGH [None]
  - BRONCHOSPASM [None]
  - ANAPHYLACTIC SHOCK [None]
  - CHEST PAIN [None]
  - SPEECH DISORDER [None]
  - DYSPNOEA [None]
